FAERS Safety Report 17087072 (Version 2)
Quarter: 2021Q4

REPORT INFORMATION
  Report Type: Spontaneous
  Country: US (occurrence: US)
  Receive Date: 20191128
  Receipt Date: 20211231
  Transmission Date: 20220303
  Serious: Yes (Hospitalization, Other)
  Sender: FDA-Public Use
  Company Number: US-SUN PHARMACEUTICAL INDUSTRIES LTD-2019R1-227953

PATIENT
  Age: 9 Year
  Sex: Male

DRUGS (1)
  1. BACLOFEN [Suspect]
     Active Substance: BACLOFEN
     Indication: Product used for unknown indication
     Dosage: 148.2 MICROGRAM, DAILY
     Route: 037

REACTIONS (4)
  - Overdose [Unknown]
  - Respiratory depression [Unknown]
  - Unresponsive to stimuli [Unknown]
  - Hypotonia [Unknown]
